FAERS Safety Report 8885269 (Version 13)
Quarter: 2014Q1

REPORT INFORMATION
  Report Type: Report from Study
  Country: FR (occurrence: FR)
  Receive Date: 20121101
  Receipt Date: 20140131
  Transmission Date: 20141002
  Serious: Yes (Hospitalization, Other)
  Sender: FDA-Public Use
  Company Number: FR-TEVA-367794USA

PATIENT
  Age: 67 Year
  Sex: Male

DRUGS (17)
  1. LEVACT [Suspect]
     Indication: MANTLE CELL LYMPHOMA
     Dosage: D1, D2 CYCLE
     Route: 042
     Dates: start: 20120321
  2. LEVACT [Suspect]
     Route: 042
     Dates: start: 20120418
  3. LEVACT [Suspect]
     Route: 042
     Dates: start: 20120613
  4. LEVACT [Suspect]
     Route: 042
     Dates: start: 20120712
  5. LEVACT [Suspect]
     Route: 042
     Dates: start: 20120813, end: 20120813
  6. MABTHERA [Suspect]
     Indication: MANTLE CELL LYMPHOMA
     Dosage: D1 CYCLE
     Route: 042
     Dates: start: 20120321
  7. MABTHERA [Suspect]
     Route: 042
     Dates: start: 20120418
  8. MABTHERA [Suspect]
     Route: 042
     Dates: start: 20120613
  9. MABTHERA [Suspect]
     Route: 042
     Dates: start: 20120712
  10. MABTHERA [Suspect]
     Route: 042
     Dates: start: 20120813, end: 20120813
  11. VELCADE [Suspect]
     Indication: MANTLE CELL LYMPHOMA
     Dosage: D1, D4, D8, D11
     Route: 058
     Dates: start: 20120321
  12. VELCADE [Suspect]
     Route: 058
     Dates: start: 20120418
  13. VELCADE [Suspect]
     Route: 058
     Dates: start: 20120613
  14. VELCADE [Suspect]
     Route: 058
     Dates: start: 20120712
  15. VELCADE [Suspect]
     Route: 058
     Dates: start: 20120813, end: 20120813
  16. DEXAMETHASONE [Suspect]
     Indication: MANTLE CELL LYMPHOMA
     Dosage: D2 CYCLE
     Route: 042
     Dates: start: 20120322, end: 20120813
  17. PREVISCAN [Concomitant]
     Indication: CARDIAC DISORDER

REACTIONS (8)
  - Hypogammaglobulinaemia [Unknown]
  - Listeriosis [Recovered/Resolved]
  - Immunosuppression [Recovered/Resolved]
  - Abdominal pain [Recovered/Resolved]
  - Chest pain [Recovered/Resolved]
  - Catheter site infection [Recovered/Resolved]
  - Dyspnoea [Recovered/Resolved]
  - Diarrhoea [Recovered/Resolved]
